FAERS Safety Report 5150559-4 (Version None)
Quarter: 2006Q4

REPORT INFORMATION
  Report Type: 
  Country: None (occurrence: None)
  Receive Date: 20061108
  Receipt Date: 20061026
  Transmission Date: 20070319
  Serious: Yes (Other)
  Sender: FDA-Public Use
  Company Number: 2006127504

PATIENT
  Age: 82 Year
  Sex: Male

DRUGS (5)
  1. NORVASC [Suspect]
     Dosage: 5 MG, ORAL
     Route: 048
     Dates: end: 20061016
  2. BUP-4 (PROPIVERINE HYDROCHLORIDE) [Suspect]
     Dosage: 20 MG, ORAL
     Route: 048
     Dates: end: 20061016
  3. BAYSPIRIN (ACETYLSALICYLIC ACID) [Concomitant]
  4. TAMSULOSIN HCL [Concomitant]
  5. ENALAPRIL MALEATE [Concomitant]

REACTIONS (6)
  - ALANINE AMINOTRANSFERASE INCREASED [None]
  - ASPARTATE AMINOTRANSFERASE INCREASED [None]
  - BILE DUCT STONE [None]
  - BLOOD BILIRUBIN INCREASED [None]
  - LIVER DISORDER [None]
  - RHABDOMYOLYSIS [None]
